FAERS Safety Report 12717323 (Version 1)
Quarter: 2016Q3

REPORT INFORMATION
  Report Type: Spontaneous
  Country: AT (occurrence: AT)
  Receive Date: 20160906
  Receipt Date: 20160906
  Transmission Date: 20161109
  Serious: Yes (Life-Threatening, Other)
  Sender: FDA-Public Use
  Company Number: AT-GLAXOSMITHKLINE-AT2016GSK128276

PATIENT
  Age: 34 Year
  Sex: Female
  Weight: 66 kg

DRUGS (2)
  1. DIBONDRIN [Suspect]
     Active Substance: DIPHENHYDRAMINE HYDROCHLORIDE
     Indication: ANAPHYLAXIS PROPHYLAXIS
     Dosage: 30 MG, UNK
     Dates: start: 20160816, end: 20160817
  2. ULSAL [Suspect]
     Active Substance: RANITIDINE HYDROCHLORIDE
     Indication: ANAPHYLAXIS PROPHYLAXIS
     Dosage: 50 MG, UNK
     Route: 042
     Dates: start: 20160816, end: 20160817

REACTIONS (1)
  - Anaphylactic reaction [Recovered/Resolved]

NARRATIVE: CASE EVENT DATE: 20160816
